FAERS Safety Report 5630398-8 (Version None)
Quarter: 2008Q1

REPORT INFORMATION
  Report Type: 
  Country: None (occurrence: None)
  Receive Date: 20080219
  Receipt Date: 20080215
  Transmission Date: 20080703
  Serious: Yes (Death)
  Sender: FDA-Public Use
  Company Number: PHHY2008JP01189

PATIENT
  Age: 62 Year
  Sex: Female

DRUGS (8)
  1. COMTAN [Suspect]
     Indication: PARKINSON'S DISEASE
     Dosage: 600 MG/DAY
     Route: 048
     Dates: start: 20070522, end: 20080126
  2. GLYSENNID [Concomitant]
     Route: 048
  3. MAGLAX [Concomitant]
     Route: 065
  4. PURGATIVES AND CLYSTERS [Concomitant]
     Route: 054
  5. EC DOPARL [Concomitant]
     Dosage: 5 DF
     Route: 048
  6. DOPS [Concomitant]
     Dosage: 3 DF
     Route: 048
  7. PRAMIPEXOLE DIHYDROCHLORIDE [Concomitant]
     Dosage: 4 DF/DAY
     Route: 048
  8. METLIGINE [Concomitant]
     Dosage: 4 DF/DAY
     Route: 048

REACTIONS (12)
  - ABDOMINAL PAIN [None]
  - BOWEL MOVEMENT IRREGULARITY [None]
  - CARDIO-RESPIRATORY ARREST [None]
  - CONSTIPATION [None]
  - ENEMA ADMINISTRATION [None]
  - FLATULENCE [None]
  - INTESTINAL PERFORATION [None]
  - LOSS OF CONSCIOUSNESS [None]
  - NAUSEA [None]
  - RESPIRATORY ARREST [None]
  - SEPSIS [None]
  - SHOCK [None]
